FAERS Safety Report 15760829 (Version 2)
Quarter: 2019Q2

REPORT INFORMATION
  Report Type: Spontaneous
  Country: US (occurrence: US)
  Receive Date: 20181226
  Receipt Date: 20190628
  Transmission Date: 20190711
  Serious: No
  Sender: FDA-Public Use
  Company Number: US-PFIZER INC-2018526919

PATIENT
  Age: 48 Year
  Sex: Female

DRUGS (2)
  1. LYRICA [Suspect]
     Active Substance: PREGABALIN
     Indication: FIBROMYALGIA
     Dosage: 400 MG, DAILY (100 MG IN A.M, 150 MG NOON + 150 MG IN P.M)
  2. LYRICA [Suspect]
     Active Substance: PREGABALIN
     Indication: PAIN
     Dosage: 900 MG, DAILY(LYRICA 1 CAP 150 MG IN AM,1 CAP 150 MG AT NOON, 1 CAP 300 MG AT QHS, 2 CAP 150 MG QHS)

REACTIONS (4)
  - Prescribed overdose [Unknown]
  - Somnolence [Unknown]
  - Off label use [Unknown]
  - Product use issue [Unknown]
